FAERS Safety Report 9397302 (Version 2)
Quarter: 2013Q3

REPORT INFORMATION
  Report Type: Report from Study
  Country: US (occurrence: US)
  Receive Date: 20130712
  Receipt Date: 20130724
  Transmission Date: 20140515
  Serious: Yes (Hospitalization)
  Sender: FDA-Public Use
  Company Number: US-GENZYME-MOZO-1000880

PATIENT
  Age: 69 Year
  Sex: Female
  Weight: 62.8 kg

DRUGS (11)
  1. MOZOBIL [Suspect]
     Indication: ACUTE MYELOID LEUKAEMIA
     Dosage: 14780 MCG,
     Route: 058
     Dates: start: 20130520, end: 20130601
  2. FILGRASTIM [Suspect]
     Indication: ACUTE MYELOID LEUKAEMIA
     Dosage: 600 MCG, UNK
     Route: 058
     Dates: start: 20130520, end: 20130601
  3. SORAFENIB [Suspect]
     Indication: ACUTE MYELOID LEUKAEMIA
     Dosage: 800 MG, BID
     Route: 065
     Dates: start: 20130520, end: 20130616
  4. ACYCLOVIR [Concomitant]
     Indication: INFECTION PROPHYLAXIS
     Dosage: 400 MG, BID
     Route: 048
  5. AMLODIPINE [Concomitant]
     Indication: HYPERTENSION
     Dosage: 10 MG, QD
     Route: 048
  6. LEVAQUIN [Concomitant]
     Indication: INFECTION PROPHYLAXIS
     Dosage: 500 MG, QD
     Route: 048
  7. LYSINE [Concomitant]
     Indication: SUPPLEMENTATION THERAPY
     Dosage: 474 MG, BID
     Route: 048
  8. MAGNESIUM OXIDE [Concomitant]
     Indication: SUPPLEMENTATION THERAPY
     Dosage: 133 MG, BID
     Route: 048
  9. TOPROL XL [Concomitant]
     Indication: HYPERTENSION
     Dosage: 100 MG, QD
     Route: 048
  10. VORICONAZOLE [Concomitant]
     Indication: INFECTION PROPHYLAXIS
     Dosage: 200 MG, BID
     Route: 048
  11. ZOFRAN [Concomitant]
     Indication: NAUSEA
     Dosage: 8 MG, PRN (EVERY 8 HOURS)
     Route: 048

REACTIONS (3)
  - Muscular weakness [Not Recovered/Not Resolved]
  - Pyrexia [Not Recovered/Not Resolved]
  - Diarrhoea [Not Recovered/Not Resolved]
